FAERS Safety Report 11789505 (Version 1)
Quarter: 2015Q4

REPORT INFORMATION
  Report Type: Spontaneous
  Country: DE (occurrence: DE)
  Receive Date: 20151201
  Receipt Date: 20151201
  Transmission Date: 20160305
  Serious: Yes (Other)
  Sender: FDA-Public Use
  Company Number: DE-PFIZER INC-2015062903

PATIENT

DRUGS (3)
  1. MAGNETRANS /01486820/ [Concomitant]
     Indication: MUSCLE SPASMS
     Dosage: 2X1
     Route: 064
     Dates: start: 201505
  2. TREVILOR RETARD [Suspect]
     Active Substance: VENLAFAXINE HYDROCHLORIDE
     Indication: ANXIETY DISORDER
     Dosage: 150 MG, DAILY (CAPSULES WERE TAKEN AT A DOSE OF 2 X 75 MG)
     Route: 064
     Dates: start: 201410
  3. FOLIC [Concomitant]
     Indication: PREGNANCY
     Dosage: 1 DF, 1X/DAY
     Route: 064
     Dates: start: 201410

REACTIONS (2)
  - Maternal exposure during pregnancy [Unknown]
  - Staphylococcal infection [Unknown]
